FAERS Safety Report 25727930 (Version 2)
Quarter: 2025Q3

REPORT INFORMATION
  Report Type: Spontaneous
  Country: EU (occurrence: EU)
  Receive Date: 20250826
  Receipt Date: 20250918
  Transmission Date: 20251020
  Serious: Yes (Other)
  Sender: TEVA
  Company Number: EU-TEVA-VS-3365030

PATIENT
  Age: 23 Year
  Sex: Female

DRUGS (7)
  1. FLUOROURACIL [Suspect]
     Active Substance: FLUOROURACIL
     Indication: Rectal adenocarcinoma
     Route: 065
     Dates: start: 201912, end: 202003
  2. FLUOROURACIL [Suspect]
     Active Substance: FLUOROURACIL
     Indication: Rectal adenocarcinoma
     Route: 065
     Dates: start: 202003, end: 202005
  3. PANITUMUMAB [Suspect]
     Active Substance: PANITUMUMAB
     Indication: Rectal adenocarcinoma
     Route: 065
     Dates: start: 201912, end: 202003
  4. LEUCOVORIN [Suspect]
     Active Substance: LEUCOVORIN\LEUCOVORIN CALCIUM
     Indication: Rectal adenocarcinoma
     Route: 065
     Dates: start: 201912, end: 202003
  5. IRINOTECAN [Suspect]
     Active Substance: IRINOTECAN
     Indication: Rectal adenocarcinoma
     Route: 065
     Dates: start: 201912, end: 202003
  6. OXALIPLATIN [Suspect]
     Active Substance: OXALIPLATIN
     Indication: Rectal adenocarcinoma
     Route: 065
     Dates: start: 201912, end: 202003
  7. OXALIPLATIN [Suspect]
     Active Substance: OXALIPLATIN
     Indication: Rectal adenocarcinoma
     Dosage: 50 MG/MQ
     Route: 065
     Dates: start: 202003, end: 202005

REACTIONS (8)
  - Diarrhoea [Unknown]
  - Body mass index increased [Unknown]
  - Amenorrhoea [Not Recovered/Not Resolved]
  - Alopecia [Unknown]
  - Fatigue [Unknown]
  - Vomiting [Unknown]
  - Metabolic disorder [Unknown]
  - Ovarian failure [Not Recovered/Not Resolved]
